FAERS Safety Report 23370834 (Version 1)
Quarter: 2024Q1

REPORT INFORMATION
  Report Type: Spontaneous
  Country: US (occurrence: US)
  Receive Date: 20240105
  Receipt Date: 20240105
  Transmission Date: 20240410
  Serious: No
  Sender: FDA-Public Use
  Company Number: US-SANOFI-01891181

PATIENT
  Age: 62 Year
  Sex: Male

DRUGS (3)
  1. TOUJEO [Suspect]
     Active Substance: INSULIN GLARGINE
     Indication: Diabetes mellitus
     Dosage: 100 IU, QD, DRUG TREATMENT DURATION:UTR (6-7 MONTHS)
     Dates: start: 2023
  2. TRULICITY [Concomitant]
     Active Substance: DULAGLUTIDE
  3. ELIQUIS [Concomitant]
     Active Substance: APIXABAN

REACTIONS (10)
  - Upper respiratory tract infection [Unknown]
  - Asthenia [Unknown]
  - Peripheral swelling [Unknown]
  - Hypervolaemia [Unknown]
  - Joint swelling [Unknown]
  - Eating disorder [Unknown]
  - Weight increased [Unknown]
  - Blood glucose decreased [Unknown]
  - Glycosylated haemoglobin decreased [Unknown]
  - Intentional product misuse [Unknown]

NARRATIVE: CASE EVENT DATE: 20230101
